FAERS Safety Report 25779368 (Version 5)
Quarter: 2025Q4

REPORT INFORMATION
  Report Type: Spontaneous
  Country: CO (occurrence: CO)
  Receive Date: 20250909
  Receipt Date: 20251031
  Transmission Date: 20260118
  Serious: No
  Sender: PFIZER
  Company Number: CO-PFIZER INC-PV202500104305

PATIENT
  Age: 11 Year
  Sex: Female
  Weight: 29 kg

DRUGS (1)
  1. GENOTROPIN [Suspect]
     Active Substance: SOMATROPIN
     Indication: Growth hormone deficiency
     Dosage: 1 MG, DAILY
     Route: 058
     Dates: start: 20250726

REACTIONS (2)
  - Device leakage [Unknown]
  - Injection site bruising [Recovering/Resolving]
